FAERS Safety Report 24323375 (Version 2)
Quarter: 2024Q4

REPORT INFORMATION
  Report Type: Spontaneous
  Country: US (occurrence: US)
  Receive Date: 20240916
  Receipt Date: 20241008
  Transmission Date: 20250114
  Serious: Yes (Other)
  Sender: PFIZER
  Company Number: US-PFIZER INC-202400256415

PATIENT
  Age: 53 Year
  Sex: Female
  Weight: 77.098 kg

DRUGS (1)
  1. EUCRISA [Suspect]
     Active Substance: CRISABOROLE
     Indication: Eczema
     Dosage: 60 G, 2X/DAY
     Route: 061

REACTIONS (1)
  - Blindness [Unknown]
